FAERS Safety Report 9300232 (Version 1)
Quarter: 2012Q4

REPORT INFORMATION
  Report Type: Spontaneous
  Country: US (occurrence: None)
  Receive Date: 20121113
  Receipt Date: 20121113
  Transmission Date: 20130627
  Serious: Yes (Hospitalization, Disabling, Other)
  Sender: FDA-Public Use
  Company Number: 2012P1063182

PATIENT
  Sex: Female

DRUGS (2)
  1. FENTANYL [Suspect]
     Route: 062
  2. FENTORA [Suspect]
     Indication: BREAKTHROUGH PAIN

REACTIONS (4)
  - Malaise [None]
  - Pain [None]
  - Weight decreased [None]
  - Impaired work ability [None]
